FAERS Safety Report 10258584 (Version 2)
Quarter: 2014Q2

REPORT INFORMATION
  Report Type: Spontaneous
  Country: DE (occurrence: FR)
  Receive Date: 20140625
  Receipt Date: 20140625
  Transmission Date: 20141212
  Serious: No
  Sender: FDA-Public Use
  Company Number: US-MERZ NORTH AMERICA, INC.-14MRZ-00148

PATIENT
  Age: 51 Year
  Sex: Female

DRUGS (1)
  1. AETHOXYSKLEROL [Suspect]
     Indication: VARICOSE VEIN
     Dosage: AETOXISCLEROL TAMPONNE 0.5% 5 ML (MILLILITERS)
     Route: 065

REACTIONS (3)
  - Face oedema [Recovered/Resolved]
  - Respiratory distress [Recovered/Resolved]
  - Angioedema [None]
